FAERS Safety Report 6872729-7 (Version None)
Quarter: 2010Q3

REPORT INFORMATION
  Report Type: 
  Country: None (occurrence: None)
  Receive Date: 20100723
  Receipt Date: 20081025
  Transmission Date: 20110219
  Serious: Yes (Other)
  Sender: FDA-Public Use
  Company Number: US-PFIZER INC-2008090670

PATIENT
  Sex: Male
  Weight: 57.2 kg

DRUGS (4)
  1. CHANTIX [Suspect]
     Indication: SMOKING CESSATION THERAPY
     Dates: start: 20061012, end: 20060101
  2. AMLODIPINE BESYLATE [Concomitant]
     Indication: HYPERTENSION
  3. DIOVAN HCT [Concomitant]
     Indication: HYPERTENSION
  4. OXYGEN [Concomitant]

REACTIONS (12)
  - BODY HEIGHT DECREASED [None]
  - DEPRESSION [None]
  - DYSPNOEA [None]
  - FEELING ABNORMAL [None]
  - HYPERVENTILATION [None]
  - ILL-DEFINED DISORDER [None]
  - MEMORY IMPAIRMENT [None]
  - MIDDLE INSOMNIA [None]
  - NERVOUSNESS [None]
  - RESTLESSNESS [None]
  - SCREAMING [None]
  - SUICIDAL IDEATION [None]
